FAERS Safety Report 16943726 (Version 1)
Quarter: 2019Q4

REPORT INFORMATION
  Report Type: Report from Study
  Country: US (occurrence: US)
  Receive Date: 20191022
  Receipt Date: 20191022
  Transmission Date: 20200122
  Serious: Yes (Other)
  Sender: FDA-Public Use
  Company Number: US-ROCHE-2444247

PATIENT
  Age: 69 Year
  Sex: Female
  Weight: 71.8 kg

DRUGS (3)
  1. OBINUTUZUMAB. [Suspect]
     Active Substance: OBINUTUZUMAB
     Indication: CHRONIC LYMPHOCYTIC LEUKAEMIA
     Dosage: 100 MG ON DAY 1, CYCLE 1 AND 900 MG IV ON DAY 2, CYCLE 1?100 MG ON DAY 1, CYCLE 1 AND 900 MG IV ON D
     Route: 042
     Dates: start: 20190321
  2. IBRUTINIB [Suspect]
     Active Substance: IBRUTINIB
     Indication: CHRONIC LYMPHOCYTIC LEUKAEMIA
     Dosage: ON 28/AUG/2019, HE RECEIVED RECENT DOSE OF IBRUTINIB PRIOR TO EVENT.
     Route: 048
     Dates: start: 20190321
  3. VENETOCLAX. [Suspect]
     Active Substance: VENETOCLAX
     Indication: CHRONIC LYMPHOCYTIC LEUKAEMIA
     Dosage: 20 MG: 1 TO 7 DAYS CYCLE 3, 50 DAYS 8 TO 14, CYCLE 3, 100 MG DAYS 15 TO 21, 200 MG DAYS 22 TO 28, CY
     Route: 048
     Dates: start: 20190321

REACTIONS (2)
  - Myalgia [Recovering/Resolving]
  - Arthralgia [Recovering/Resolving]

NARRATIVE: CASE EVENT DATE: 20190828
